FAERS Safety Report 7821344-7 (Version None)
Quarter: 2011Q4

REPORT INFORMATION
  Report Type: 
  Country: None (occurrence: None)
  Receive Date: 20111018
  Receipt Date: 20101202
  Transmission Date: 20120403
  Serious: No
  Sender: FDA-Public Use
  Company Number: US-ASTRAZENECA-2010SE49297

PATIENT
  Age: 70 Year
  Sex: Female

DRUGS (21)
  1. OMEPRAZOLE [Concomitant]
     Indication: HIATUS HERNIA
  2. TAMOXIFEN CITRATE [Concomitant]
  3. PROAIR HFA [Concomitant]
     Indication: INHALATION THERAPY
     Dosage: AS REQUIRED.
  4. SYMBICORT [Suspect]
     Indication: EMPHYSEMA
     Dosage: 160/4.5 MCG-2, TWO TIMES A DAY.
     Route: 055
     Dates: start: 20100601
  5. ZOMETA [Concomitant]
  6. PROPOXYPHENE NAPSYLATE AND ACETAMINOPHEN [Concomitant]
     Indication: BACK DISORDER
     Dosage: AS REQUIRED.
  7. ALPRAZOLAM [Concomitant]
  8. ASCORBIC ACID [Concomitant]
  9. ECHINACEA [Concomitant]
  10. HYDROCHLOROTHIAZIDE [Concomitant]
  11. MAGNESIUM [Concomitant]
  12. VITAMIN D [Concomitant]
  13. SUPER B [Concomitant]
  14. FISH OIL [Concomitant]
  15. Q-10 [Concomitant]
  16. GLUCOSAMINE [Concomitant]
  17. AMBIEN [Concomitant]
  18. BUPROPION HCL [Concomitant]
  19. ACIDOPHILUS [Concomitant]
  20. CALCIUM CARBONATE [Concomitant]
  21. ASPIRIN [Concomitant]

REACTIONS (3)
  - INCREASED UPPER AIRWAY SECRETION [None]
  - BLOOD PRESSURE INCREASED [None]
  - MUSCLE SPASMS [None]
